FAERS Safety Report 5309001-2 (Version None)
Quarter: 2007Q2

REPORT INFORMATION
  Report Type: 
  Country: None (occurrence: None)
  Receive Date: 20070426
  Receipt Date: 20070416
  Transmission Date: 20071010
  Serious: Yes (Other)
  Sender: FDA-Public Use
  Company Number: FR-PFIZER INC-2007030705

PATIENT
  Age: 53 Year
  Sex: Female

DRUGS (2)
  1. CHAMPIX [Suspect]
     Indication: SMOKING CESSATION THERAPY
     Dates: start: 20070401
  2. ESCITALOPRAM OXALATE [Concomitant]

REACTIONS (4)
  - AMNESIA [None]
  - CONFUSIONAL STATE [None]
  - NIGHTMARE [None]
  - VERTIGO [None]
